FAERS Safety Report 7368116-8 (Version None)
Quarter: 2011Q1

REPORT INFORMATION
  Report Type: 
  Country: None (occurrence: None)
  Receive Date: 20110311
  Receipt Date: 20110225
  Transmission Date: 20110831
  Serious: Yes (Death, Hospitalization, Other)
  Sender: FDA-Public Use
  Company Number: 011990

PATIENT
  Age: 49 Year
  Sex: Male

DRUGS (32)
  1. CYCLOPHOSPHAMIDE [Concomitant]
  2. ALUMINUM HYDROXIDE AND MAGNESIUM TRISILICATE [Concomitant]
  3. DOCUSATE (DOCUSATE) [Concomitant]
  4. PANTOPRAZOLE [Concomitant]
  5. METRONIDAZOLE [Concomitant]
  6. CLINDAMYCIN [Concomitant]
  7. BUSULFAN [Suspect]
     Indication: STEM CELL TRANSPLANT
     Dosage: 68 MG, DAILY DOSE, INTRAVENOUS ; 313 MG, DAILY DOSE, INTRAVENOUS
     Route: 042
     Dates: start: 20100929, end: 20100929
  8. BUSULFAN [Suspect]
     Indication: STEM CELL TRANSPLANT
     Dosage: 68 MG, DAILY DOSE, INTRAVENOUS ; 313 MG, DAILY DOSE, INTRAVENOUS
     Route: 042
     Dates: start: 20100923, end: 20100923
  9. METOPROLOL (METOPROLOL) [Concomitant]
  10. AMIODARONE (AMIODARONE) [Concomitant]
  11. FENTANYL [Concomitant]
  12. LOPERAMIDE [Concomitant]
  13. VORICONAZOLE [Concomitant]
  14. URSODIOL [Concomitant]
  15. INSULIN GLARGINE (INSULIN GLARGINE) [Concomitant]
  16. BUMETANIDE [Concomitant]
  17. ALPRAZOLAM [Concomitant]
  18. LANSOPRAZOLE [Concomitant]
  19. VANCOMYCIN [Concomitant]
  20. LORAZEPAM [Concomitant]
  21. MORPHINE [Concomitant]
  22. CEFEPIME [Concomitant]
  23. ACETAMINOPHEN [Concomitant]
  24. GUAIFENESIN DM (DEXTROMETHORPHAN HYDROBROMIDE, GUAIFENESIN) [Concomitant]
  25. DIPHENHYDRAMINE HCL [Concomitant]
  26. ACYCLOVIR [Concomitant]
  27. FLUCONAZOLE [Concomitant]
  28. MEROPENEM [Concomitant]
  29. ETOPOSIDE [Concomitant]
  30. SENNA (SENNA) [Concomitant]
  31. TRAZODONE HCL [Concomitant]
  32. AZITHROMYCIN [Concomitant]

REACTIONS (18)
  - ACUTE RESPIRATORY FAILURE [None]
  - HYPERHIDROSIS [None]
  - NO THERAPEUTIC RESPONSE [None]
  - CYSTITIS HAEMORRHAGIC [None]
  - PARALYSIS [None]
  - CYSTITIS [None]
  - BK VIRUS INFECTION [None]
  - CYTOMEGALOVIRUS VIRAEMIA [None]
  - ACUTE RESPIRATORY DISTRESS SYNDROME [None]
  - SEPTIC SHOCK [None]
  - PLATELET COUNT DECREASED [None]
  - MUCOSAL INFLAMMATION [None]
  - ATRIAL FIBRILLATION [None]
  - HYPOTENSION [None]
  - TACHYPNOEA [None]
  - PULMONARY ALVEOLAR HAEMORRHAGE [None]
  - HAEMOGLOBIN DECREASED [None]
  - ABDOMINAL DISTENSION [None]
